FAERS Safety Report 7526765-8 (Version None)
Quarter: 2011Q2

REPORT INFORMATION
  Report Type: 
  Country: None (occurrence: None)
  Receive Date: 20110606
  Receipt Date: 20110507
  Transmission Date: 20111010
  Serious: No
  Sender: FDA-Public Use
  Company Number: US-BAYER-2011-040163

PATIENT
  Sex: Female

DRUGS (1)
  1. MIDOL LIQUID GELS [Suspect]
     Dosage: 5 DF, UNK
     Route: 048

REACTIONS (1)
  - NO ADVERSE EVENT [None]
